FAERS Safety Report 6496687-2 (Version None)
Quarter: 2009Q4

REPORT INFORMATION
  Report Type: 
  Country: None (occurrence: None)
  Receive Date: 20091210
  Receipt Date: 20091127
  Transmission Date: 20100525
  Serious: Yes (Other)
  Sender: FDA-Public Use
  Company Number: 1000010546

PATIENT
  Age: 97 Year
  Sex: Male

DRUGS (2)
  1. MEMANTINE HCL [Suspect]
     Dosage: 5 MG (5 MG, 1 IN 1 D), ORAL
     Route: 048
  2. MEMANTINE HCL [Suspect]
     Dosage: 10 MG (5 MG, 2 IN 1 D), ORAL
     Route: 048

REACTIONS (2)
  - SEDATION [None]
  - TRANSIENT ISCHAEMIC ATTACK [None]
